FAERS Safety Report 20097682 (Version 9)
Quarter: 2022Q1

REPORT INFORMATION
  Report Type: Spontaneous
  Country: PL (occurrence: PL)
  Receive Date: 20211122
  Receipt Date: 20220302
  Transmission Date: 20220423
  Serious: Yes (Hospitalization, Other)
  Sender: FDA-Public Use
  Company Number: PL-MYLANLABS-2021M1084753

PATIENT
  Age: 31 Year
  Sex: Male

DRUGS (23)
  1. OMEPRAZOLE [Interacting]
     Active Substance: OMEPRAZOLE
     Indication: Product used for unknown indication
     Dosage: 20 MILLIGRAM, BID, 2 X 20MG
     Route: 065
  2. CLARITHROMYCIN [Interacting]
     Active Substance: CLARITHROMYCIN
     Indication: Cough
     Dosage: 500 MILLIGRAM, BID, 2 X 500 MG
     Route: 048
  3. CLARITHROMYCIN [Interacting]
     Active Substance: CLARITHROMYCIN
     Dosage: 1 GRAM, QD
     Route: 048
  4. VALSARTAN [Suspect]
     Active Substance: VALSARTAN
     Indication: Product used for unknown indication
     Dosage: UNK
  5. AMLODIPINE [Interacting]
     Active Substance: AMLODIPINE BESYLATE
     Indication: Hypertension
     Dosage: 10 MILLIGRAM, QD
     Route: 065
  6. AMOXICILLIN\CLAVULANIC ACID [Interacting]
     Active Substance: AMOXICILLIN\CLAVULANIC ACID
     Indication: Product used for unknown indication
     Dosage: 1000 MILLIGRAM, BID, 2 X 1000 MG
     Route: 065
  7. ESCITALOPRAM [Interacting]
     Active Substance: ESCITALOPRAM OXALATE
     Indication: Depression
     Dosage: 10 MILLIGRAM, QD
     Route: 065
  8. DEXTROMETHORPHAN [Interacting]
     Active Substance: DEXTROMETHORPHAN
     Indication: Cough
     Dosage: 30 MILLIGRAM, TID, 3 X 30 MG
  9. METHYLPREDNISOLONE [Interacting]
     Active Substance: METHYLPREDNISOLONE
     Indication: Product used for unknown indication
     Dosage: 8 MILLIGRAM, BID, 2 X 8 MG
  10. SULFOGAIACOL [Suspect]
     Active Substance: SULFOGAIACOL
     Indication: Product used for unknown indication
     Dosage: UNK (3 TABLETS)
  11. CODEINE SULFATE [Suspect]
     Active Substance: CODEINE SULFATE
     Indication: Product used for unknown indication
     Dosage: UNK, 3 X 1 TABLET
  12. VORTIOXETINE [Suspect]
     Active Substance: VORTIOXETINE
     Indication: Depression
     Dosage: UNK
  13. LEVODROPROPIZINE [Suspect]
     Active Substance: LEVODROPROPIZINE
     Indication: Antitussive therapy
     Dosage: UNK
  14. AMLODIPINE\PERINDOPRIL [Interacting]
     Active Substance: AMLODIPINE\PERINDOPRIL
     Indication: Hypertension
     Dosage: 10 MILLIGRAM, QD (10 MG OF PERINDOPRIL AND 10 MG OF AMLODIPINE)
  15. AMLODIPINE\PERINDOPRIL [Interacting]
     Active Substance: AMLODIPINE\PERINDOPRIL
     Indication: Insomnia
  16. AMLODIPINE\PERINDOPRIL [Interacting]
     Active Substance: AMLODIPINE\PERINDOPRIL
     Indication: Affective disorder
  17. DEXTROMETHORPHAN HYDROBROMIDE [Interacting]
     Active Substance: DEXTROMETHORPHAN HYDROBROMIDE
     Indication: Antitussive therapy
     Dosage: 30 MILLIGRAM, Q8H (30 MG, TID)
     Route: 048
  18. DEXTROMETHORPHAN HYDROBROMIDE [Interacting]
     Active Substance: DEXTROMETHORPHAN HYDROBROMIDE
     Indication: Cough
  19. CODEINE PHOSPHATE\SULFOGAIACOL [Interacting]
     Active Substance: CODEINE PHOSPHATE\SULFOGAIACOL
     Indication: Cough
     Dosage: 3 DOSAGE FORM, Q8H,3 X 1
     Route: 048
  20. AMOXICILLIN\CLAVULANATE POTASSIUM [Concomitant]
     Active Substance: AMOXICILLIN\CLAVULANATE POTASSIUM
     Indication: Product used for unknown indication
     Dosage: 1000 MILLIGRAM, BID
  21. VALSARTAN [Concomitant]
     Active Substance: VALSARTAN
     Indication: Hypertension
     Dosage: UNK
  22. VORTIOXETINE [Concomitant]
     Active Substance: VORTIOXETINE
     Indication: Depression
     Dosage: UNK
  23. METHYLPREDNISOLONE [Concomitant]
     Active Substance: METHYLPREDNISOLONE
     Indication: Product used for unknown indication
     Dosage: UNK

REACTIONS (17)
  - Cough [Recovered/Resolved]
  - Condition aggravated [Unknown]
  - Drug interaction [Recovered/Resolved]
  - Serotonin syndrome [Unknown]
  - Joint swelling [Unknown]
  - Irritability [Unknown]
  - General physical health deterioration [Unknown]
  - Poor quality sleep [Unknown]
  - Labelled drug-drug interaction medication error [Unknown]
  - Sleep disorder [Unknown]
  - Hyperhidrosis [Unknown]
  - Constipation [Unknown]
  - Oedema peripheral [Unknown]
  - Contraindicated product administered [Unknown]
  - Labelled drug-drug interaction issue [Unknown]
  - Intentional product misuse [Unknown]
  - Drug level increased [Unknown]

NARRATIVE: CASE EVENT DATE: 20210101
